FAERS Safety Report 11773872 (Version 5)
Quarter: 2015Q4

REPORT INFORMATION
  Report Type: Report from Study
  Country: US (occurrence: US)
  Receive Date: 20151124
  Receipt Date: 20151221
  Transmission Date: 20160304
  Serious: Yes (Death, Other)
  Sender: FDA-Public Use
  Company Number: US-BAYER-2015-461839

PATIENT
  Age: 76 Year
  Sex: Male

DRUGS (2)
  1. STIVARGA [Suspect]
     Active Substance: REGORAFENIB
     Indication: COLON CANCER
     Dosage: 160 MG, QD (40 MG 4 TABLETS DAILY)
     Route: 048
     Dates: start: 20151025, end: 201510
  2. STIVARGA [Suspect]
     Active Substance: REGORAFENIB
     Indication: COLON CANCER
     Dosage: 160MG ONCE DAILY
     Route: 048
     Dates: start: 201510, end: 20151212

REACTIONS (13)
  - Constipation [None]
  - Constipation [Recovered/Resolved]
  - Groin infection [Recovering/Resolving]
  - Oedema [None]
  - Constipation [Not Recovered/Not Resolved]
  - Dehydration [None]
  - Skin exfoliation [None]
  - Asthenia [None]
  - Death [Fatal]
  - Diarrhoea [None]
  - Decreased appetite [None]
  - Fatigue [None]
  - Hypersomnia [None]

NARRATIVE: CASE EVENT DATE: 201510
